FAERS Safety Report 24123591 (Version 1)
Quarter: 2024Q3

REPORT INFORMATION
  Report Type: Spontaneous
  Country: US (occurrence: US)
  Receive Date: 20240723
  Receipt Date: 20240723
  Transmission Date: 20241016
  Serious: Yes (Other)
  Sender: OTSUKA
  Company Number: US-OTSUKA-2024_000946

PATIENT
  Sex: Female

DRUGS (1)
  1. REXULTI [Suspect]
     Active Substance: BREXPIPRAZOLE
     Indication: Major depression
     Dosage: 2 MG 1 MG (TOOK 2 MG INSTEAD OF 1 MG)
     Route: 065

REACTIONS (2)
  - Tardive dyskinesia [Unknown]
  - Incorrect dose administered [Unknown]
